FAERS Safety Report 22642467 (Version 1)
Quarter: 2023Q2

REPORT INFORMATION
  Report Type: Report from Study
  Country: DO (occurrence: DO)
  Receive Date: 20230626
  Receipt Date: 20230626
  Transmission Date: 20230722
  Serious: Yes (Other)
  Sender: FDA-Public Use
  Company Number: JNJFOC-20230656759

PATIENT
  Age: 62 Year

DRUGS (1)
  1. IMBRUVICA [Suspect]
     Active Substance: IBRUTINIB
     Indication: Product used for unknown indication
     Route: 048
     Dates: start: 20230304

REACTIONS (3)
  - Chronic lymphocytic leukaemia [Unknown]
  - Treatment noncompliance [Unknown]
  - Asthenia [Unknown]

NARRATIVE: CASE EVENT DATE: 20230501
